FAERS Safety Report 9713328 (Version 1)
Quarter: 2013Q4

REPORT INFORMATION
  Report Type: Spontaneous
  Country: DK (occurrence: DK)
  Receive Date: 20131126
  Receipt Date: 20131126
  Transmission Date: 20140711
  Serious: Yes (Other)
  Sender: FDA-Public Use
  Company Number: DK-TEVA-446277ISR

PATIENT
  Age: 62 Year
  Sex: Male
  Weight: 73 kg

DRUGS (1)
  1. SIMVASTATIN [Suspect]
     Indication: BLOOD CHOLESTEROL INCREASED
     Dosage: DOSAGE: 1 TABLET TWICE DAILY
     Route: 048
     Dates: start: 20111101, end: 20111201

REACTIONS (2)
  - Abasia [Recovered/Resolved]
  - Pain in extremity [Recovered/Resolved]
